FAERS Safety Report 25661090 (Version 1)
Quarter: 2025Q3

REPORT INFORMATION
  Report Type: Spontaneous
  Country: EU (occurrence: EU)
  Receive Date: 20250808
  Receipt Date: 20250808
  Transmission Date: 20251021
  Serious: Yes (Other)
  Sender: MYLAN
  Company Number: None

PATIENT
  Age: 36 Year
  Sex: Male

DRUGS (4)
  1. METFORMIN [Suspect]
     Active Substance: METFORMIN HYDROCHLORIDE
     Indication: Diabetes mellitus
     Dosage: 1 GRAM, BID,(1 G MORNING AND EVENING)
     Dates: start: 2021, end: 20250701
  2. METFORMIN [Suspect]
     Active Substance: METFORMIN HYDROCHLORIDE
     Dosage: 1 GRAM, BID,(1 G MORNING AND EVENING)
     Route: 048
     Dates: start: 2021, end: 20250701
  3. METFORMIN [Suspect]
     Active Substance: METFORMIN HYDROCHLORIDE
     Dosage: 1 GRAM, BID,(1 G MORNING AND EVENING)
     Route: 048
     Dates: start: 2021, end: 20250701
  4. METFORMIN [Suspect]
     Active Substance: METFORMIN HYDROCHLORIDE
     Dosage: 1 GRAM, BID,(1 G MORNING AND EVENING)
     Dates: start: 2021, end: 20250701

REACTIONS (1)
  - Chest pain [Recovering/Resolving]
